FAERS Safety Report 25943431 (Version 3)
Quarter: 2025Q4

REPORT INFORMATION
  Report Type: Report from Study
  Country: US (occurrence: US)
  Receive Date: 20251021
  Receipt Date: 20251219
  Transmission Date: 20260117
  Serious: Yes (Other)
  Sender: ALEXION PHARMACEUTICALS
  Company Number: US-AstraZeneca-CH-00973824AP

PATIENT
  Sex: Female

DRUGS (2)
  1. TEZEPELUMAB [Suspect]
     Active Substance: TEZEPELUMAB
     Indication: Asthma
     Dosage: 210 MILLIGRAM, QMONTH
     Dates: start: 202411
  2. TEZEPELUMAB [Suspect]
     Active Substance: TEZEPELUMAB

REACTIONS (15)
  - Incorrect dose administered [Unknown]
  - Wrong technique in product usage process [Unknown]
  - Drug ineffective [Unknown]
  - Fall [Unknown]
  - Craniofacial fracture [Unknown]
  - Cervical spinal stenosis [Unknown]
  - Dyspnoea [Unknown]
  - Cognitive disorder [Unknown]
  - Mobility decreased [Unknown]
  - Bronchitis [Unknown]
  - Illness [Unknown]
  - Accidental exposure to product [Unknown]
  - Injection site pain [Unknown]
  - Product dose omission issue [Unknown]
  - Pain [Unknown]
